FAERS Safety Report 9904264 (Version 1)
Quarter: 2014Q1

REPORT INFORMATION
  Report Type: Spontaneous
  Country: US (occurrence: US)
  Receive Date: 20140218
  Receipt Date: 20140218
  Transmission Date: 20141002
  Serious: Yes (Other)
  Sender: FDA-Public Use
  Company Number: US-SUN PHARMACEUTICAL INDUSTRIES LTD-2014SUN00285

PATIENT
  Sex: 0

DRUGS (6)
  1. LITHIUM CARBONATE TABLETS, USP 300MG [Suspect]
     Indication: SCHIZOPHRENIA
     Route: 065
  2. LITHIUM CARBONATE TABLETS, USP 300MG [Suspect]
     Indication: BIPOLAR DISORDER
  3. IBUPROFEN [Suspect]
     Indication: PAIN
     Route: 065
  4. VALPROIC ACID [Concomitant]
  5. QUETIAPINE [Concomitant]
  6. RISPERIDONE [Concomitant]

REACTIONS (3)
  - Metabolic encephalopathy [Recovered/Resolved]
  - Renal failure [Recovering/Resolving]
  - Toxicity to various agents [Recovered/Resolved]
